FAERS Safety Report 21022065 (Version 1)
Quarter: 2022Q2

REPORT INFORMATION
  Report Type: Spontaneous
  Country: US (occurrence: US)
  Receive Date: 20220629
  Receipt Date: 20220629
  Transmission Date: 20220721
  Serious: No
  Sender: FDA-Public Use
  Company Number: US-009507513-2206USA003842

PATIENT
  Age: 10 Year

DRUGS (6)
  1. TEMODAR [Suspect]
     Active Substance: TEMOZOLOMIDE
     Indication: Medulloblastoma
     Dosage: UNK
     Route: 048
  2. CISPLATIN [Concomitant]
     Active Substance: CISPLATIN
  3. LOMUSTINE [Concomitant]
     Active Substance: LOMUSTINE
  4. VINCRISTINE [Concomitant]
     Active Substance: VINCRISTINE
  5. TOPOTECAN [Concomitant]
     Active Substance: TOPOTECAN HYDROCHLORIDE
  6. ETOPOSIDE [Concomitant]
     Active Substance: ETOPOSIDE

REACTIONS (1)
  - Product use in unapproved indication [Unknown]
